FAERS Safety Report 23529579 (Version 2)
Quarter: 2025Q4

REPORT INFORMATION
  Report Type: Spontaneous
  Country: US (occurrence: US)
  Receive Date: 20240216
  Receipt Date: 20251222
  Transmission Date: 20260117
  Serious: Yes (Death, Other)
  Sender: AMGEN
  Company Number: US-AMGEN-USASP2024029098

PATIENT

DRUGS (1)
  1. EPOETIN ALFA [Suspect]
     Active Substance: ERYTHROPOIETIN
     Indication: Prophylaxis
     Dosage: 400 UNITS/KILOGRAM/DOSE, 3 TIMES/WK UNTIL 32 WEEKS
     Route: 058

REACTIONS (10)
  - Death [Fatal]
  - Albuminuria [Unknown]
  - Bronchopulmonary dysplasia [Unknown]
  - Patent ductus arteriosus [Unknown]
  - Intraventricular haemorrhage [Unknown]
  - Necrotising colitis [Unknown]
  - Sepsis [Unknown]
  - Blood pressure increased [Unknown]
  - Off label use [Unknown]
  - Drug ineffective [Unknown]
